FAERS Safety Report 11399055 (Version 1)
Quarter: 2015Q3

REPORT INFORMATION
  Report Type: Report from Study
  Country: US (occurrence: US)
  Receive Date: 20150820
  Receipt Date: 20150820
  Transmission Date: 20151125
  Serious: Yes (Other)
  Sender: FDA-Public Use
  Company Number: US-ABBVIE-15K-163-1444698-00

PATIENT
  Sex: Female

DRUGS (6)
  1. ISONIAZID. [Suspect]
     Active Substance: ISONIAZID
     Indication: TUBERCULOSIS
     Route: 065
  2. HUMIRA [Suspect]
     Active Substance: ADALIMUMAB
     Route: 065
     Dates: start: 201305, end: 20130705
  3. HUMIRA [Suspect]
     Active Substance: ADALIMUMAB
     Route: 065
     Dates: start: 20130810
  4. HUMIRA [Suspect]
     Active Substance: ADALIMUMAB
     Route: 065
     Dates: start: 201302, end: 201304
  5. HUMIRA [Suspect]
     Active Substance: ADALIMUMAB
     Indication: RHEUMATOID ARTHRITIS
     Route: 065
     Dates: start: 2011
  6. HUMIRA [Suspect]
     Active Substance: ADALIMUMAB
     Route: 065
     Dates: start: 201304, end: 201305

REACTIONS (8)
  - Drug ineffective [Recovered/Resolved]
  - Incorrect dose administered [Unknown]
  - Incision site infection [Recovered/Resolved]
  - Incorrect dose administered [Unknown]
  - Mycobacterium tuberculosis complex test positive [Recovered/Resolved]
  - Abdominoplasty [Recovered/Resolved]
  - Incorrect dose administered [Unknown]
  - Hepatitis [Unknown]

NARRATIVE: CASE EVENT DATE: 2013
